FAERS Safety Report 11675245 (Version 1)
Quarter: 2015Q4

REPORT INFORMATION
  Report Type: Spontaneous
  Country: US (occurrence: US)
  Receive Date: 20151027
  Receipt Date: 20151027
  Transmission Date: 20160304
  Serious: No
  Sender: FDA-Public Use
  Company Number: US-ELI_LILLY_AND_COMPANY-US201008002939

PATIENT
  Sex: Female

DRUGS (1)
  1. FORTEO [Suspect]
     Active Substance: TERIPARATIDE
     Indication: OSTEOPOROSIS
     Dosage: 20 UG, DAILY (1/D)
     Route: 065

REACTIONS (11)
  - Back pain [Unknown]
  - Spinal fracture [Unknown]
  - Balance disorder [Unknown]
  - Drug ineffective [Unknown]
  - Upper limb fracture [Unknown]
  - Nerve compression [Unknown]
  - Blood pressure increased [Unknown]
  - Neck pain [Unknown]
  - Musculoskeletal pain [Unknown]
  - Abdominal discomfort [Unknown]
  - Back injury [Unknown]
